FAERS Safety Report 5311826-4 (Version None)
Quarter: 2007Q2

REPORT INFORMATION
  Report Type: 
  Country: None (occurrence: None)
  Receive Date: 20070427
  Receipt Date: 20070427
  Transmission Date: 20071010
  Serious: Yes (Other)
  Sender: FDA-Public Use
  Company Number: None

PATIENT
  Age: 36 Year
  Sex: Male
  Weight: 79 kg

DRUGS (2)
  1. CHLORDIAZEPOXIDE 25MG HYDROCHLORIDE CAP [Suspect]
     Indication: ALCOHOL DETOXIFICATION
     Dosage: 25MG EVERY 6 HOURS PO
     Route: 048
     Dates: start: 20070330, end: 20070413
  2. ALCOHOL [Concomitant]

REACTIONS (5)
  - ALCOHOL WITHDRAWAL SYNDROME [None]
  - ALCOHOLISM [None]
  - FLASHBACK [None]
  - NIGHTMARE [None]
  - TREATMENT NONCOMPLIANCE [None]
